FAERS Safety Report 24152545 (Version 1)
Quarter: 2024Q3

REPORT INFORMATION
  Report Type: Spontaneous
  Country: AU (occurrence: AU)
  Receive Date: 20240730
  Receipt Date: 20240730
  Transmission Date: 20241016
  Serious: Yes (Other)
  Sender: TEVA
  Company Number: AU-TEVA-VS-3222477

PATIENT
  Age: 58 Year
  Sex: Male

DRUGS (2)
  1. DASATINIB [Suspect]
     Active Substance: DASATINIB
     Route: 065
  2. IMATINIB [Suspect]
     Active Substance: IMATINIB
     Route: 065

REACTIONS (4)
  - Leukaemia recurrent [Unknown]
  - Drug ineffective [Unknown]
  - Pleural effusion [Unknown]
  - White blood cell count increased [Unknown]
